FAERS Safety Report 4764692-X (Version None)
Quarter: 2005Q3

REPORT INFORMATION
  Report Type: 
  Country: None (occurrence: None)
  Receive Date: 20050909
  Receipt Date: 20050519
  Transmission Date: 20060218
  Serious: Yes (Hospitalization)
  Sender: FDA-Public Use
  Company Number: US-MERCK-0505USA02362

PATIENT
  Age: 54 Year
  Sex: Female
  Weight: 84 kg

DRUGS (26)
  1. VIOXX [Suspect]
     Indication: OSTEOARTHRITIS
     Route: 048
     Dates: start: 19990201, end: 20030101
  2. VIOXX [Suspect]
     Route: 048
     Dates: start: 20030101, end: 20040901
  3. VIOXX [Suspect]
     Route: 048
     Dates: start: 20000101, end: 20040901
  4. VIOXX [Suspect]
     Indication: FIBROMYALGIA
     Route: 048
     Dates: start: 19990201, end: 20030101
  5. VIOXX [Suspect]
     Route: 048
     Dates: start: 20030101, end: 20040901
  6. VIOXX [Suspect]
     Route: 048
     Dates: start: 20000101, end: 20040901
  7. OXYCODONE [Concomitant]
     Indication: PAIN
     Route: 065
     Dates: start: 19990401
  8. OXYCONTIN [Concomitant]
     Indication: PAIN
     Route: 065
     Dates: start: 19990101
  9. PREMARIN [Concomitant]
     Indication: MENOPAUSAL SYMPTOMS
     Route: 065
     Dates: start: 20020501
  10. PROTONIX [Concomitant]
     Indication: GASTROOESOPHAGEAL REFLUX DISEASE
     Route: 065
  11. LORCET-HD [Concomitant]
     Indication: PAIN
     Route: 065
  12. PREMPRO [Concomitant]
     Indication: MENOPAUSAL SYMPTOMS
     Route: 065
     Dates: start: 20020501
  13. PROZAC [Concomitant]
     Route: 065
  14. PRILOSEC [Concomitant]
     Indication: GASTROOESOPHAGEAL REFLUX DISEASE
     Route: 048
  15. MEDROXYPROGESTERONE ACETATE [Concomitant]
     Indication: MENOPAUSAL SYMPTOMS
     Route: 065
     Dates: start: 20020501
  16. DETROL LA [Concomitant]
     Indication: HYPERTONIC BLADDER
     Route: 065
  17. NEXIUM [Concomitant]
     Indication: GASTROOESOPHAGEAL REFLUX DISEASE
     Route: 065
  18. LORAZEPAM [Concomitant]
     Route: 065
  19. SYNTHROID [Concomitant]
     Indication: THYROID DISORDER
     Route: 065
  20. EFFEXOR [Concomitant]
     Route: 065
  21. ENDOCET [Concomitant]
     Indication: PAIN
     Route: 065
     Dates: start: 20040101
  22. COMBIVENT [Concomitant]
     Indication: EMPHYSEMA
     Route: 065
  23. XANAX [Concomitant]
     Route: 065
  24. PAXIL [Concomitant]
     Route: 065
  25. HYDROCODONE BITARTRATE [Concomitant]
     Indication: PAIN
     Route: 065
     Dates: start: 19990101
  26. TYLENOL [Concomitant]
     Route: 065

REACTIONS (25)
  - ANGINA PECTORIS [None]
  - ANGINA UNSTABLE [None]
  - ARTHRALGIA [None]
  - BACK PAIN [None]
  - BLOOD CHOLESTEROL INCREASED [None]
  - BRONCHITIS [None]
  - BURSITIS [None]
  - CONSTIPATION [None]
  - CORONARY ARTERY DISEASE [None]
  - COUGH [None]
  - DEPRESSION [None]
  - DRUG HYPERSENSITIVITY [None]
  - DYSPNOEA [None]
  - FIBROMYALGIA [None]
  - GALLBLADDER DISORDER [None]
  - HAEMORRHOIDS [None]
  - HYPERTENSION [None]
  - MENOPAUSE [None]
  - MIGRAINE [None]
  - MYOCARDIAL INFARCTION [None]
  - NECK PAIN [None]
  - PAIN [None]
  - PAIN IN EXTREMITY [None]
  - RECTAL HAEMORRHAGE [None]
  - VAGINAL HAEMORRHAGE [None]
